FAERS Safety Report 10087507 (Version 1)
Quarter: 2014Q2

REPORT INFORMATION
  Report Type: Spontaneous
  Country: US (occurrence: US)
  Receive Date: 20140418
  Receipt Date: 20140418
  Transmission Date: 20141212
  Serious: No
  Sender: FDA-Public Use
  Company Number: US-PURDUE-USA-2013-0108536

PATIENT
  Sex: Male

DRUGS (1)
  1. OXYCONTIN (NDA 22-272) [Suspect]
     Indication: PAIN
     Dosage: 60 MG, Q6H
     Route: 048
     Dates: start: 2005

REACTIONS (4)
  - Drug withdrawal syndrome [Unknown]
  - Hypermetabolism [Unknown]
  - Mental impairment [Unknown]
  - Lethargy [Unknown]
